FAERS Safety Report 24360572 (Version 1)
Quarter: 2024Q3

REPORT INFORMATION
  Report Type: Spontaneous
  Country: US (occurrence: US)
  Receive Date: 20240925
  Receipt Date: 20240925
  Transmission Date: 20241017
  Serious: Yes (Other)
  Sender: AMGEN
  Company Number: US-AMGEN-USASP2024187667

PATIENT
  Age: 5 Year
  Sex: Female

DRUGS (6)
  1. PREDNISONE [Suspect]
     Active Substance: PREDNISONE
     Indication: Rasmussen encephalitis
     Dosage: UNK (HIGH DOSE)
     Route: 065
  2. RITUXIMAB [Suspect]
     Active Substance: RITUXIMAB
     Indication: Rasmussen encephalitis
     Dosage: UNK
     Route: 065
  3. LEVETIRACETAM [Concomitant]
     Active Substance: LEVETIRACETAM
     Indication: Rasmussen encephalitis
     Dosage: 200 MILLIGRAM, QD
  4. TRILEPTAL [Concomitant]
     Active Substance: OXCARBAZEPINE
     Indication: Rasmussen encephalitis
     Dosage: 120 MILLIGRAM, BID
  5. HUMAN IMMUNOGLOBULIN G [Concomitant]
     Active Substance: HUMAN IMMUNOGLOBULIN G
     Indication: Rasmussen encephalitis
     Dosage: UNK, QMO
     Route: 042
  6. CLOBAZAM [Concomitant]
     Active Substance: CLOBAZAM
     Indication: Rasmussen encephalitis
     Dosage: 12.5 MILLIGRAM PER DECILITRE

REACTIONS (2)
  - Rasmussen encephalitis [Recovering/Resolving]
  - Off label use [Unknown]
